FAERS Safety Report 8406640-7 (Version None)
Quarter: 2012Q2

REPORT INFORMATION
  Report Type: 
  Country: None (occurrence: None)
  Receive Date: 20120604
  Receipt Date: 20120531
  Transmission Date: 20120825
  Serious: Yes (Death)
  Sender: FDA-Public Use
  Company Number: FR-SANOFI-AVENTIS-2012SA038612

PATIENT
  Age: 51 Year
  Sex: Female

DRUGS (7)
  1. CYTARABINE [Suspect]
     Route: 065
     Dates: start: 20120214
  2. CEFOTAXIME [Suspect]
     Route: 065
     Dates: start: 20120126, end: 20120214
  3. DEXAMETHASONE [Suspect]
     Route: 065
  4. ELOXATIN [Suspect]
     Route: 065
     Dates: start: 20120214
  5. CORTICOSTEROID NOS [Concomitant]
     Dates: start: 20120207
  6. MABTHERA [Suspect]
     Route: 065
     Dates: start: 20120213
  7. TEGELINE [Concomitant]
     Dates: start: 20120207, end: 20120213

REACTIONS (4)
  - DIARRHOEA [None]
  - ABDOMINAL PAIN [None]
  - SHOCK [None]
  - DYSPNOEA [None]
